FAERS Safety Report 11611293 (Version 2)
Quarter: 2015Q4

REPORT INFORMATION
  Report Type: Spontaneous
  Country: US (occurrence: US)
  Receive Date: 20151008
  Receipt Date: 20151009
  Transmission Date: 20160304
  Serious: Yes (Other)
  Sender: FDA-Public Use
  Company Number: US-PFIZER INC-2015326202

PATIENT
  Age: 90 Year
  Sex: Female

DRUGS (4)
  1. NEURONTIN [Suspect]
     Active Substance: GABAPENTIN
     Dosage: 100 MG, UNK
     Dates: start: 20150926, end: 20150926
  2. NEURONTIN [Suspect]
     Active Substance: GABAPENTIN
     Indication: CYSTITIS
     Dosage: UNK
     Dates: start: 2014
  3. NEURONTIN [Suspect]
     Active Substance: GABAPENTIN
     Indication: NEUROPATHY PERIPHERAL
     Dosage: 100 MG, UNK
  4. NEURONTIN [Suspect]
     Active Substance: GABAPENTIN
     Dosage: 100 MG, EVERY FIVE HOURS
     Dates: start: 20150927

REACTIONS (5)
  - Cystitis [Unknown]
  - Expired product administered [Unknown]
  - Drug ineffective for unapproved indication [Unknown]
  - Condition aggravated [Unknown]
  - Chills [Unknown]

NARRATIVE: CASE EVENT DATE: 20150926
